FAERS Safety Report 15193119 (Version 1)
Quarter: 2018Q3

REPORT INFORMATION
  Report Type: Spontaneous
  Country: US (occurrence: US)
  Receive Date: 20180725
  Receipt Date: 20180725
  Transmission Date: 20181010
  Serious: Yes (Other)
  Sender: FDA-Public Use
  Company Number: US-AMGEN-USASP2018097337

PATIENT
  Age: 64 Year
  Sex: Female

DRUGS (7)
  1. CALCIUM [Concomitant]
     Active Substance: CALCIUM
     Dosage: 1000 MG, UNK
  2. LETROZOLE. [Concomitant]
     Active Substance: LETROZOLE
     Indication: BREAST CANCER METASTATIC
     Dosage: UNK
     Dates: end: 201803
  3. XGEVA [Suspect]
     Active Substance: DENOSUMAB
     Indication: BREAST CANCER METASTATIC
  4. VITAMIN D [Concomitant]
     Active Substance: CHOLECALCIFEROL
  5. XGEVA [Suspect]
     Active Substance: DENOSUMAB
     Indication: PROPHYLAXIS
     Dosage: 120 MG, Q4WK
     Route: 065
     Dates: start: 2016
  6. IBRANCE [Concomitant]
     Active Substance: PALBOCICLIB
     Indication: BREAST CANCER METASTATIC
     Dosage: UNK
     Dates: end: 201803
  7. DOXIL [Concomitant]
     Active Substance: DOXORUBICIN HYDROCHLORIDE
     Dosage: UNK
     Dates: start: 201803, end: 2018

REACTIONS (8)
  - Breast cancer metastatic [Not Recovered/Not Resolved]
  - Rash generalised [Recovered/Resolved]
  - Headache [Unknown]
  - Nausea [Unknown]
  - Arthralgia [Unknown]
  - Feeling abnormal [Unknown]
  - Bone pain [Unknown]
  - Bedridden [Unknown]

NARRATIVE: CASE EVENT DATE: 2018
